FAERS Safety Report 15611734 (Version 1)
Quarter: 2018Q4

REPORT INFORMATION
  Report Type: Spontaneous
  Country: US (occurrence: US)
  Receive Date: 20181107
  Receipt Date: 20181107
  Transmission Date: 20190205
  Serious: Yes (Life-Threatening, Hospitalization)
  Sender: FDA-Public Use
  Company Number: None

PATIENT
  Age: 59 Year
  Sex: Male
  Weight: 74 kg

DRUGS (1)
  1. IODIXANOL. [Suspect]
     Active Substance: IODIXANOL
     Indication: ANGIOGRAM
     Route: 042
     Dates: start: 20181105, end: 20181105

REACTIONS (6)
  - Tachycardia [None]
  - Anaphylactic shock [None]
  - Hypotension [None]
  - Respiratory distress [None]
  - Acute myocardial infarction [None]
  - Tachypnoea [None]

NARRATIVE: CASE EVENT DATE: 20181105
